FAERS Safety Report 6348404-4 (Version None)
Quarter: 2009Q3

REPORT INFORMATION
  Report Type: 
  Country: None (occurrence: None)
  Receive Date: 20090911
  Receipt Date: 20090901
  Transmission Date: 20100115
  Serious: Yes (Other)
  Sender: FDA-Public Use
  Company Number: US-BIOGENIDEC-2009BI019688

PATIENT
  Age: 34 Year
  Sex: Female

DRUGS (2)
  1. TYSABRI [Suspect]
     Indication: MULTIPLE SCLEROSIS
     Route: 042
     Dates: start: 20050121, end: 20050201
  2. TYSABRI [Suspect]
     Route: 042
     Dates: start: 20090605

REACTIONS (3)
  - BREAST CANCER [None]
  - FATIGUE [None]
  - GAIT DISTURBANCE [None]
